FAERS Safety Report 8939094 (Version 1)
Quarter: 2012Q4

REPORT INFORMATION
  Report Type: 
  Country: FR (occurrence: FR)
  Receive Date: 20121203
  Receipt Date: 20121203
  Transmission Date: 20130627
  Serious: Yes (Life-Threatening)
  Sender: FDA-Public Use
  Company Number: FR-SANOFI-AVENTIS-2012SA087013

PATIENT
  Age: 65 Year
  Sex: Male

DRUGS (2)
  1. DAONIL [Suspect]
     Indication: POISONING DELIBERATE
     Route: 048
     Dates: start: 20121026, end: 20121026
  2. GLUCOPHAGE [Suspect]
     Indication: POISONING DELIBERATE
     Route: 048
     Dates: start: 20121026, end: 20121026

REACTIONS (4)
  - Renal failure acute [Recovered/Resolved]
  - Toxicity to various agents [Unknown]
  - Lactic acidosis [Recovered/Resolved]
  - Hypoglycaemia [Recovered/Resolved]
